FAERS Safety Report 8549635-5 (Version None)
Quarter: 2012Q3

REPORT INFORMATION
  Report Type: 
  Country: None (occurrence: None)
  Receive Date: 20120718
  Receipt Date: 20120124
  Transmission Date: 20120928
  Serious: Yes (Other)
  Sender: FDA-Public Use
  Company Number: 2012000015

PATIENT
  Age: 78 Year
  Sex: Female

DRUGS (3)
  1. ACEON [Suspect]
     Indication: HYPERTENSION
     Dosage: 5 MG, SINGLE, ORAL
     Route: 048
     Dates: start: 20120120, end: 20120120
  2. CORONAL (BISOPROLOL FUMARATE) [Concomitant]
  3. KARDIKET (ISOSORBIDE DINITRATE) [Concomitant]

REACTIONS (5)
  - BLOOD PRESSURE INCREASED [None]
  - HEART RATE DECREASED [None]
  - EXPIRED DRUG ADMINISTERED [None]
  - DRUG INEFFECTIVE [None]
  - MALAISE [None]
